FAERS Safety Report 6058283-0 (Version None)
Quarter: 2009Q1

REPORT INFORMATION
  Report Type: 
  Country: None (occurrence: None)
  Receive Date: 20090130
  Receipt Date: 20090123
  Transmission Date: 20090719
  Serious: Yes (Other)
  Sender: FDA-Public Use
  Company Number: US-BAYER-200841862NA

PATIENT
  Age: 63 Year
  Sex: Male

DRUGS (6)
  1. ULTRAVIST 300 [Suspect]
     Indication: COMPUTERISED TOMOGRAM ABDOMEN
     Dosage: TOTAL DAILY DOSE: 100 ML  UNIT DOSE: 100 ML
     Route: 042
     Dates: start: 20081230, end: 20081230
  2. GASTROGRAFIN [Concomitant]
     Indication: COMPUTERISED TOMOGRAM ABDOMEN
     Route: 048
     Dates: start: 20081230, end: 20081230
  3. CELEXA [Concomitant]
  4. TRICOR [Concomitant]
  5. METFORMIN [Concomitant]
  6. NEURONTIN [Concomitant]

REACTIONS (10)
  - ERYTHEMA [None]
  - EYE PRURITUS [None]
  - EYE SWELLING [None]
  - HYPERSENSITIVITY [None]
  - LIP SWELLING [None]
  - ORAL PRURITUS [None]
  - PRURITUS [None]
  - SWELLING FACE [None]
  - SWOLLEN TONGUE [None]
  - URTICARIA [None]
